FAERS Safety Report 9667988 (Version 1)
Quarter: 2013Q4

REPORT INFORMATION
  Report Type: Spontaneous
  Country: US (occurrence: US)
  Receive Date: 20131104
  Receipt Date: 20131104
  Transmission Date: 20140711
  Serious: Yes (Other)
  Sender: FDA-Public Use
  Company Number: US-PFIZER INC-2013310786

PATIENT
  Age: 24 Year
  Sex: Female

DRUGS (2)
  1. SERTRALINE HCL [Suspect]
     Indication: POSTPARTUM DEPRESSION
     Dosage: 50 MG, DAILY
     Dates: start: 20130927
  2. SERTRALINE HCL [Suspect]
     Indication: ANXIETY

REACTIONS (26)
  - Mania [Unknown]
  - Feeling abnormal [Unknown]
  - Daydreaming [Unknown]
  - Anxiety [Unknown]
  - Middle insomnia [Unknown]
  - Tachyphrenia [Unknown]
  - Thinking abnormal [Unknown]
  - Panic attack [Unknown]
  - Tremor [Unknown]
  - Akathisia [Unknown]
  - Paraesthesia [Unknown]
  - Skin warm [Unknown]
  - Formication [Unknown]
  - Mydriasis [Unknown]
  - Dysgraphia [Unknown]
  - Reading disorder [Unknown]
  - Speech disorder [Unknown]
  - Restlessness [Unknown]
  - Nervousness [Unknown]
  - Insomnia [Unknown]
  - Panic disorder [Unknown]
  - Visual impairment [Unknown]
  - Feeling jittery [Unknown]
  - Restless legs syndrome [Unknown]
  - Diarrhoea [Unknown]
  - Nausea [Unknown]
